FAERS Safety Report 18192125 (Version 1)
Quarter: 2020Q3

REPORT INFORMATION
  Report Type: Spontaneous
  Country: US (occurrence: US)
  Receive Date: 20200825
  Receipt Date: 20200825
  Transmission Date: 20201103
  Serious: No
  Sender: FDA-Public Use
  Company Number: US-PFIZER INC-2020327334

PATIENT
  Age: 71 Year
  Sex: Female

DRUGS (5)
  1. SKELAXIN [Suspect]
     Active Substance: METAXALONE
     Dosage: UNK
  2. LYRICA [Concomitant]
     Active Substance: PREGABALIN
     Dosage: 50 MG, 3X/DAY
     Route: 048
  3. NAFCILLIN [Suspect]
     Active Substance: NAFCILLIN SODIUM
     Dosage: UNK
  4. BACLOFEN. [Suspect]
     Active Substance: BACLOFEN
     Dosage: UNK
  5. ALLOPURINOL. [Suspect]
     Active Substance: ALLOPURINOL
     Dosage: UNK

REACTIONS (1)
  - Drug hypersensitivity [Unknown]
